FAERS Safety Report 11883547 (Version 2)
Quarter: 2016Q1

REPORT INFORMATION
  Report Type: Report from Study
  Country: IT (occurrence: IT)
  Receive Date: 20151231
  Receipt Date: 20160203
  Transmission Date: 20160526
  Serious: Yes (Death, Hospitalization)
  Sender: FDA-Public Use
  Company Number: PHHY2015IT171254

PATIENT
  Age: 50 Year
  Sex: Male
  Weight: 96 kg

DRUGS (8)
  1. TRAMETINIB [Suspect]
     Active Substance: TRAMETINIB
     Indication: METASTATIC MALIGNANT MELANOMA
     Dosage: 2 MG, QD
     Route: 048
     Dates: start: 20151029, end: 20151214
  2. DABRAFENIB [Suspect]
     Active Substance: DABRAFENIB
     Indication: METASTATIC MALIGNANT MELANOMA
     Dosage: 300 MG, QD
     Route: 048
     Dates: start: 20150903, end: 20150930
  3. PANTOPRAZOLE [Concomitant]
     Active Substance: PANTOPRAZOLE SODIUM
     Indication: GASTRIC DISORDER
     Dosage: 20 MG, QD
     Route: 065
     Dates: start: 20150921, end: 20151214
  4. PREGABALIN. [Concomitant]
     Active Substance: PREGABALIN
     Indication: PAIN
     Dosage: 75 MG, BID
     Route: 065
     Dates: start: 20150921, end: 20151214
  5. DABRAFENIB [Suspect]
     Active Substance: DABRAFENIB
     Dosage: 200 MG, QD
     Route: 048
     Dates: start: 20151001, end: 20151214
  6. TARGIN [Concomitant]
     Active Substance: NALOXONE HYDROCHLORIDE\OXYCODONE HYDROCHLORIDE
     Indication: PRODUCT USED FOR UNKNOWN INDICATION
     Dosage: 60 MG, UNK
     Route: 065
     Dates: end: 20151214
  7. OSSICODONE [Concomitant]
     Indication: PAIN
     Dosage: 20 MG, BID
     Route: 065
     Dates: start: 20151126
  8. NALOXONE [Concomitant]
     Active Substance: NALOXONE
     Indication: PAIN
     Dosage: 10 MG, BID
     Route: 065
     Dates: start: 20151126

REACTIONS (2)
  - Cerebral haemorrhage [Fatal]
  - Thrombocytopenia [Fatal]

NARRATIVE: CASE EVENT DATE: 20151214
